FAERS Safety Report 7544533-8 (Version None)
Quarter: 2011Q2

REPORT INFORMATION
  Report Type: 
  Country: None (occurrence: None)
  Receive Date: 20110613
  Receipt Date: 20110608
  Transmission Date: 20111010
  Serious: Yes (Hospitalization)
  Sender: FDA-Public Use
  Company Number: US-ELI_LILLY_AND_COMPANY-US200906005622

PATIENT
  Sex: Female
  Weight: 79.819 kg

DRUGS (17)
  1. QUININE SULFATE [Concomitant]
     Dosage: UNK, UNKNOWN
  2. ASPIRIN [Concomitant]
     Dosage: UNK, UNKNOWN
  3. ORAL ANTIDIABETICS [Concomitant]
     Dosage: UNK, UNKNOWN
  4. ANTIBIOTICS [Concomitant]
     Dosage: UNK, UNKNOWN
     Dates: start: 20060101
  5. XANAX [Concomitant]
     Dosage: 1 MG, 3/D
     Route: 048
  6. SYNTHROID [Concomitant]
     Dosage: 300 UG, DAILY (1/D)
  7. INSULIN [Concomitant]
     Dosage: UNK, UNKNOWN
  8. FERROUS SULFATE TAB [Concomitant]
     Dosage: UNK, UNKNOWN
  9. BYETTA [Suspect]
     Dosage: UNK, UNKNOWN
     Dates: start: 20060714, end: 20060914
  10. ATENOLOL [Concomitant]
     Dosage: UNK, UNKNOWN
  11. VYTORIN [Concomitant]
     Dosage: UNK, UNKNOWN
  12. GABAPENTIN [Concomitant]
  13. NEURONTIN [Concomitant]
     Dosage: 300 MG, 3/D
  14. LEXAPRO [Concomitant]
     Dosage: UNK, UNKNOWN
  15. LEVOTHYROXINE SODIUM [Concomitant]
  16. MECLIZINE [Concomitant]
     Dosage: 25 MG, DAILY (1/D)
     Route: 048
  17. NITROGLYCERIN [Concomitant]

REACTIONS (4)
  - PANCREATITIS ACUTE [None]
  - RENAL INJURY [None]
  - GENERAL PHYSICAL HEALTH DETERIORATION [None]
  - OFF LABEL USE [None]
